FAERS Safety Report 16525464 (Version 1)
Quarter: 2019Q3

REPORT INFORMATION
  Report Type: Spontaneous
  Country: US (occurrence: US)
  Receive Date: 20190702
  Receipt Date: 20190702
  Transmission Date: 20191004
  Serious: Yes (Hospitalization, Other)
  Sender: FDA-Public Use
  Company Number: US-009507513-1906USA010380

PATIENT
  Age: 84 Year
  Sex: Female

DRUGS (2)
  1. PRINIVIL [Suspect]
     Active Substance: LISINOPRIL
     Indication: BLOOD PRESSURE ABNORMAL
     Dosage: 5 MILLIGRAM, BID
     Route: 048
  2. PRINIVIL [Suspect]
     Active Substance: LISINOPRIL
     Dosage: 10 MG TWICE DAILY
     Route: 048

REACTIONS (4)
  - Cardiac operation [Unknown]
  - Blood pressure abnormal [Unknown]
  - Cardiac failure congestive [Unknown]
  - Cardiac operation [Unknown]

NARRATIVE: CASE EVENT DATE: 2019
